FAERS Safety Report 9220199 (Version 1)
Quarter: 2013Q2

REPORT INFORMATION
  Report Type: Spontaneous
  Country: IT (occurrence: IT)
  Receive Date: 20130409
  Receipt Date: 20130409
  Transmission Date: 20140414
  Serious: Yes (Other)
  Sender: FDA-Public Use
  Company Number: PHHY2013IT033147

PATIENT
  Age: 72 Year
  Sex: Female

DRUGS (4)
  1. PREDNISONE [Suspect]
     Indication: INTERSTITIAL LUNG DISEASE
     Dosage: 50 MG/KG/DAY
  2. PREDNISONE [Suspect]
     Dosage: 5 MG/KG/DAY
  3. CICLOSPORIN [Suspect]
     Indication: INTERSTITIAL LUNG DISEASE
     Dosage: 3 MG/KG/DAY
  4. CICLOSPORIN [Suspect]
     Dosage: 1.5 MG/KG/DAY

REACTIONS (5)
  - Pulmonary arterial hypertension [Unknown]
  - Interstitial lung disease [Unknown]
  - Dyspnoea [Unknown]
  - Blood creatinine increased [Unknown]
  - Drug ineffective [Unknown]
